FAERS Safety Report 21738558 (Version 3)
Quarter: 2025Q3

REPORT INFORMATION
  Report Type: Spontaneous
  Country: JP (occurrence: JP)
  Receive Date: 20221216
  Receipt Date: 20250731
  Transmission Date: 20251020
  Serious: Yes (Hospitalization, Other)
  Sender: UNITED THERAPEUTICS
  Company Number: JP-UNITED THERAPEUTICS-UNT-2022-006050

PATIENT
  Age: 3 Year
  Sex: Male

DRUGS (39)
  1. UNITUXIN [Suspect]
     Active Substance: DINUTUXIMAB
     Indication: Neuroblastoma
     Route: 041
     Dates: start: 20220207, end: 20220210
  2. UNITUXIN [Suspect]
     Active Substance: DINUTUXIMAB
     Route: 041
     Dates: start: 20220307, end: 20220310
  3. UNITUXIN [Suspect]
     Active Substance: DINUTUXIMAB
     Route: 041
     Dates: start: 20220328, end: 20220331
  4. UNITUXIN [Suspect]
     Active Substance: DINUTUXIMAB
     Route: 041
     Dates: start: 20220425, end: 20220428
  5. UNITUXIN [Suspect]
     Active Substance: DINUTUXIMAB
     Route: 041
     Dates: start: 20220516, end: 20220519
  6. UNITUXIN [Suspect]
     Active Substance: DINUTUXIMAB
     Route: 041
     Dates: start: 20220613, end: 20220616
  7. TECELEUKIN [Suspect]
     Active Substance: TECELEUKIN
     Indication: Neuroblastoma recurrent
     Route: 041
     Dates: start: 20220228, end: 20220303
  8. TECELEUKIN [Suspect]
     Active Substance: TECELEUKIN
     Dates: start: 20220307, end: 20220310
  9. TECELEUKIN [Suspect]
     Active Substance: TECELEUKIN
     Dates: start: 20220418, end: 20220421
  10. TECELEUKIN [Suspect]
     Active Substance: TECELEUKIN
     Dates: start: 20220425, end: 20220428
  11. TECELEUKIN [Suspect]
     Active Substance: TECELEUKIN
  12. TECELEUKIN [Suspect]
     Active Substance: TECELEUKIN
     Dates: start: 20220613, end: 20220616
  13. FILGRASTIM [Suspect]
     Active Substance: FILGRASTIM
     Indication: Neuroblastoma recurrent
     Dates: start: 20220204, end: 20220217
  14. FILGRASTIM [Suspect]
     Active Substance: FILGRASTIM
     Dates: start: 20220325, end: 20220407
  15. FILGRASTIM [Suspect]
     Active Substance: FILGRASTIM
     Dates: start: 20220513, end: 20220526
  16. MORPHINE [Concomitant]
     Active Substance: MORPHINE
     Indication: Prophylaxis
     Dates: start: 20220207, end: 20220214
  17. MORPHINE [Concomitant]
     Active Substance: MORPHINE
     Dates: start: 20220307, end: 20220311
  18. MORPHINE [Concomitant]
     Active Substance: MORPHINE
     Dates: start: 20220328, end: 20220401
  19. MORPHINE [Concomitant]
     Active Substance: MORPHINE
     Dates: start: 20220425, end: 20220429
  20. MORPHINE [Concomitant]
     Active Substance: MORPHINE
     Dates: start: 20220516, end: 20220520
  21. MORPHINE [Concomitant]
     Active Substance: MORPHINE
     Dates: start: 20220613, end: 20220617
  22. HYDROXYZINE [Concomitant]
     Active Substance: HYDROXYZINE HYDROCHLORIDE
     Indication: Prophylaxis
     Dates: start: 20220207, end: 20220210
  23. HYDROXYZINE [Concomitant]
     Active Substance: HYDROXYZINE HYDROCHLORIDE
     Dates: start: 20220307, end: 20220310
  24. HYDROXYZINE [Concomitant]
     Active Substance: HYDROXYZINE HYDROCHLORIDE
     Dates: start: 20220328, end: 20220331
  25. HYDROXYZINE [Concomitant]
     Active Substance: HYDROXYZINE HYDROCHLORIDE
     Dates: start: 20220425, end: 20220428
  26. HYDROXYZINE [Concomitant]
     Active Substance: HYDROXYZINE HYDROCHLORIDE
     Dates: start: 20220516, end: 20220519
  27. HYDROXYZINE [Concomitant]
     Active Substance: HYDROXYZINE HYDROCHLORIDE
     Dates: start: 20220613, end: 20220616
  28. ACETAMINOPHEN [Concomitant]
     Active Substance: ACETAMINOPHEN
     Indication: Prophylaxis
     Dates: start: 20220207, end: 20220214
  29. ACETAMINOPHEN [Concomitant]
     Active Substance: ACETAMINOPHEN
     Dates: start: 20220307, end: 20220311
  30. ACETAMINOPHEN [Concomitant]
     Active Substance: ACETAMINOPHEN
     Dates: start: 20220328, end: 20220331
  31. ACETAMINOPHEN [Concomitant]
     Active Substance: ACETAMINOPHEN
     Dates: start: 20220418, end: 20220421
  32. ACETAMINOPHEN [Concomitant]
     Active Substance: ACETAMINOPHEN
     Dates: start: 20220425, end: 20220429
  33. ACETAMINOPHEN [Concomitant]
     Active Substance: ACETAMINOPHEN
     Dates: start: 20220516, end: 20220520
  34. ACETAMINOPHEN [Concomitant]
     Active Substance: ACETAMINOPHEN
     Dates: start: 20220606, end: 20220609
  35. ACETAMINOPHEN [Concomitant]
     Active Substance: ACETAMINOPHEN
     Dates: start: 20220613, end: 20220617
  36. FUROSEMIDE [Concomitant]
     Active Substance: FUROSEMIDE
     Indication: Prophylaxis
     Dates: start: 20220331, end: 20220331
  37. FUROSEMIDE [Concomitant]
     Active Substance: FUROSEMIDE
     Dates: start: 20220426, end: 20220428
  38. FUROSEMIDE [Concomitant]
     Active Substance: FUROSEMIDE
     Dates: start: 20220519, end: 20220519
  39. FUROSEMIDE [Concomitant]
     Active Substance: FUROSEMIDE
     Dates: start: 20220614, end: 20220614

REACTIONS (39)
  - Neuroblastoma recurrent [Not Recovered/Not Resolved]
  - Hypoxia [Recovered/Resolved]
  - Hypoxia [Recovered/Resolved]
  - Pyrexia [Recovered/Resolved]
  - Vomiting [Recovered/Resolved]
  - Abdominal pain [Recovered/Resolved]
  - Aspartate aminotransferase increased [Recovering/Resolving]
  - Alanine aminotransferase increased [Recovered/Resolved]
  - Blood creatinine increased [Recovered/Resolved]
  - Hypomagnesaemia [Recovered/Resolved]
  - Pyrexia [Recovered/Resolved]
  - Abdominal pain [Recovered/Resolved]
  - Oxygen saturation decreased [Recovered/Resolved]
  - Hypomagnesaemia [Recovered/Resolved]
  - Pyrexia [Recovered/Resolved]
  - Oedema [Recovered/Resolved]
  - Aspartate aminotransferase increased [Recovered/Resolved]
  - Alanine aminotransferase increased [Recovered/Resolved]
  - Hypoalbuminaemia [Recovered/Resolved]
  - Platelet count decreased [Not Recovered/Not Resolved]
  - Anaemia [Not Recovered/Not Resolved]
  - Hypoalbuminaemia [Recovered/Resolved]
  - Pyrexia [Recovered/Resolved]
  - Oedema [Recovered/Resolved]
  - Pyrexia [Recovered/Resolved]
  - Eosinophil count increased [Recovered/Resolved]
  - Oedema [Recovered/Resolved]
  - Pyrexia [Recovered/Resolved]
  - Hypoalbuminaemia [Not Recovered/Not Resolved]
  - Oedema [Recovered/Resolved]
  - Pyrexia [Recovered/Resolved]
  - Alanine aminotransferase increased [Recovered/Resolved]
  - Platelet count decreased [Not Recovered/Not Resolved]
  - Platelet count decreased [Not Recovered/Not Resolved]
  - Platelet count decreased [Not Recovered/Not Resolved]
  - Anaemia [Not Recovered/Not Resolved]
  - Anaemia [Not Recovered/Not Resolved]
  - Anaemia [Not Recovered/Not Resolved]
  - Eosinophil count increased [Recovered/Resolved]

NARRATIVE: CASE EVENT DATE: 20220207
